FAERS Safety Report 9207117 (Version 1)
Quarter: 2013Q2

REPORT INFORMATION
  Report Type: Spontaneous
  Country: US (occurrence: US)
  Receive Date: 20130403
  Receipt Date: 20130403
  Transmission Date: 20140414
  Serious: No
  Sender: FDA-Public Use
  Company Number: US-ASTRAZENECA-2013SE18438

PATIENT
  Age: 65 Year
  Sex: Male
  Weight: 88.5 kg

DRUGS (4)
  1. NEXIUM [Suspect]
     Indication: GASTROOESOPHAGEAL REFLUX DISEASE
     Route: 048
     Dates: start: 2003
  2. PRILOSEC DELAYED-RELEASE CAPSULES [Suspect]
     Indication: GASTROOESOPHAGEAL REFLUX DISEASE
     Route: 048
  3. AMITRIPTILLINE [Concomitant]
     Indication: OESOPHAGEAL SPASM
     Dates: start: 2010
  4. LIPITOR [Concomitant]
     Indication: BLOOD CHOLESTEROL INCREASED
     Dates: start: 1998

REACTIONS (5)
  - Oesophageal spasm [Unknown]
  - Dyspepsia [Unknown]
  - Drug dose omission [Unknown]
  - Off label use [Unknown]
  - Drug ineffective [Unknown]
